FAERS Safety Report 4551824-1 (Version None)
Quarter: 2005Q1

REPORT INFORMATION
  Report Type: 
  Country: None (occurrence: None)
  Receive Date: 20050110
  Receipt Date: 20041230
  Transmission Date: 20050727
  Serious: Yes (Other)
  Sender: FDA-Public Use
  Company Number: 2004-12-0771

PATIENT
  Age: 71 Year
  Sex: Male

DRUGS (3)
  1. CELESTONE SOLUSPAN [Suspect]
     Indication: UPPER LIMB FRACTURE
     Dosage: INTRAMUSCULAR
     Route: 030
     Dates: start: 20041110, end: 20041115
  2. IBUPROFEN [Suspect]
     Dosage: QD ORAL
     Route: 048
     Dates: end: 20041115
  3. ATHYMIL [Concomitant]

REACTIONS (3)
  - ABDOMINAL PAIN UPPER [None]
  - EATING DISORDER [None]
  - WEIGHT DECREASED [None]
